FAERS Safety Report 5076576-0 (Version None)
Quarter: 2006Q3

REPORT INFORMATION
  Report Type: 
  Country: None (occurrence: None)
  Receive Date: 20060725
  Receipt Date: 20060329
  Transmission Date: 20061208
  Serious: No
  Sender: FDA-Public Use
  Company Number: 200612012BWH

PATIENT
  Age: 59 Year
  Sex: Female

DRUGS (11)
  1. NEXAVAR [Suspect]
     Indication: RENAL CELL CARCINOMA STAGE UNSPECIFIED
     Dosage: 400 MG, BID, ORAL; SEE IMAGE
     Route: 048
     Dates: start: 20060208, end: 20060310
  2. NEXAVAR [Suspect]
     Indication: RENAL CELL CARCINOMA STAGE UNSPECIFIED
     Dosage: 400 MG, BID, ORAL; SEE IMAGE
     Route: 048
     Dates: start: 20060320, end: 20060411
  3. PROTONIX [Concomitant]
  4. LANOXIN [Concomitant]
  5. WARFARIN [Concomitant]
  6. AMITRIPTYLINE HCL [Concomitant]
  7. ACIPHEX [Concomitant]
  8. VITAMIN E [Concomitant]
  9. MULTI-VITAMIN [Concomitant]
  10. FOLIC ACID [Concomitant]
  11. AVASTIN [Concomitant]

REACTIONS (4)
  - BLISTER [None]
  - DRY SKIN [None]
  - RASH [None]
  - RASH GENERALISED [None]
